FAERS Safety Report 7193273-6 (Version None)
Quarter: 2010Q4

REPORT INFORMATION
  Report Type: 
  Country: None (occurrence: None)
  Receive Date: 20101223
  Receipt Date: 20100930
  Transmission Date: 20110411
  Serious: No
  Sender: FDA-Public Use
  Company Number: US-BAYER-201022059BCC

PATIENT
  Sex: Male
  Weight: 81.818 kg

DRUGS (6)
  1. ALEVE [Suspect]
     Indication: ANALGESIC THERAPY
     Dosage: UNK
  2. PROTONIX [Concomitant]
  3. CIPROFLAXACIN [Concomitant]
  4. CHLORTHALIDONE [Concomitant]
  5. DIOVAN [Concomitant]
  6. MULTIVITAMIN PREPARATION + MINERAL SUPPLEMENT [Concomitant]

REACTIONS (1)
  - SOMNOLENCE [None]
